FAERS Safety Report 5045425-9 (Version None)
Quarter: 2006Q3

REPORT INFORMATION
  Report Type: 
  Country: None (occurrence: None)
  Receive Date: 20060707
  Receipt Date: 20060626
  Transmission Date: 20061208
  Serious: Yes (Life-Threatening)
  Sender: FDA-Public Use
  Company Number: FR-NOVOPROD-254511

PATIENT
  Age: 41 Year
  Sex: Male
  Weight: 70 kg

DRUGS (2)
  1. GLUCAGEN [Suspect]
     Indication: GLUCAGON TOLERANCE TEST
     Dosage: 1 MG, UNK
     Route: 042
     Dates: start: 20060626, end: 20060626
  2. LANTUS [Concomitant]
     Indication: DIABETES MELLITUS INSULIN-DEPENDENT
     Dosage: 4 IU, UNK
     Route: 058
     Dates: start: 20050701

REACTIONS (2)
  - CARDIAC ARREST [None]
  - CONVULSION [None]
